FAERS Safety Report 9452713 (Version 1)
Quarter: 2013Q3

REPORT INFORMATION
  Report Type: Spontaneous
  Country: AR (occurrence: AR)
  Receive Date: 20130812
  Receipt Date: 20130812
  Transmission Date: 20140515
  Serious: Yes (Hospitalization)
  Sender: FDA-Public Use
  Company Number: PHHY2013AR084817

PATIENT
  Age: 12 Year
  Sex: Male

DRUGS (1)
  1. EXJADE [Suspect]
     Indication: CONGENITAL APLASTIC ANAEMIA
     Dosage: UNK UKN, DAILY
     Route: 048
     Dates: start: 20061017, end: 20130722

REACTIONS (10)
  - Parotitis [Recovering/Resolving]
  - Renal tubular disorder [Recovering/Resolving]
  - Abdominal pain [Recovering/Resolving]
  - Transaminases increased [Recovering/Resolving]
  - Blood sodium decreased [Unknown]
  - Blood potassium decreased [Unknown]
  - Blood calcium increased [Unknown]
  - Blood magnesium increased [Unknown]
  - Electrolyte depletion [Unknown]
  - Serum ferritin increased [Unknown]
